FAERS Safety Report 4709209-0 (Version None)
Quarter: 2005Q3

REPORT INFORMATION
  Report Type: 
  Country: None (occurrence: None)
  Receive Date: 20050706
  Receipt Date: 20050621
  Transmission Date: 20060218
  Serious: Yes (Hospitalization)
  Sender: FDA-Public Use
  Company Number: 430006M05FRA

PATIENT
  Age: 36 Year
  Sex: Male

DRUGS (3)
  1. NOVANTRONE [Suspect]
     Indication: MULTIPLE SCLEROSIS
     Dosage: INTRAVENOUS
     Route: 042
     Dates: start: 20010218, end: 20010727
  2. REBIF [Concomitant]
  3. PAROXETINE HYDROCHLORIDE [Concomitant]

REACTIONS (2)
  - METASTASES TO LUNG [None]
  - RENAL CANCER METASTATIC [None]
